FAERS Safety Report 8113122-9 (Version None)
Quarter: 2012Q1

REPORT INFORMATION
  Report Type: 
  Country: None (occurrence: None)
  Receive Date: 20120203
  Receipt Date: 20110124
  Transmission Date: 20120608
  Serious: Yes (Hospitalization)
  Sender: FDA-Public Use
  Company Number: CZ-BRISTOL-MYERS SQUIBB COMPANY-15516230

PATIENT
  Age: 47 Year
  Sex: Female

DRUGS (1)
  1. CEFZIL [Suspect]
     Route: 048
     Dates: start: 20101222, end: 20101231

REACTIONS (3)
  - RASH MACULO-PAPULAR [None]
  - RASH GENERALISED [None]
  - PURPURA [None]
